FAERS Safety Report 4740691-9 (Version None)
Quarter: 2005Q3

REPORT INFORMATION
  Report Type: 
  Country: None (occurrence: None)
  Receive Date: 20050810
  Receipt Date: 20050803
  Transmission Date: 20060218
  Serious: Yes (Other)
  Sender: FDA-Public Use
  Company Number: US-GLAXOSMITHKLINE-A0568982A

PATIENT
  Age: 44 Year
  Sex: Male
  Weight: 81.8 kg

DRUGS (1)
  1. REQUIP [Suspect]
     Indication: RESTLESS LEGS SYNDROME
     Route: 048

REACTIONS (4)
  - EXCORIATION [None]
  - FALL [None]
  - HYPOTENSION [None]
  - SYNCOPE [None]
